FAERS Safety Report 4608678-4 (Version None)
Quarter: 2005Q1

REPORT INFORMATION
  Report Type: 
  Country: None (occurrence: None)
  Receive Date: 20050315
  Receipt Date: 20011119
  Transmission Date: 20050727
  Serious: Yes (Other)
  Sender: FDA-Public Use
  Company Number: US-ROCHE-302156

PATIENT
  Age: 15 Year
  Sex: Male

DRUGS (1)
  1. ACCUTANE [Suspect]
     Indication: ACNE
     Route: 048
     Dates: start: 19840615

REACTIONS (9)
  - ANXIETY [None]
  - DEPRESSION [None]
  - DRUG INEFFECTIVE [None]
  - NERVOUSNESS [None]
  - PAIN [None]
  - SKIN DISCOLOURATION [None]
  - SLUGGISHNESS [None]
  - SUICIDAL IDEATION [None]
  - THINKING ABNORMAL [None]
